FAERS Safety Report 15948822 (Version 3)
Quarter: 2020Q4

REPORT INFORMATION
  Report Type: Spontaneous
  Country: US (occurrence: US)
  Receive Date: 20190212
  Receipt Date: 20201124
  Transmission Date: 20210113
  Serious: Yes (Hospitalization, Other)
  Sender: FDA-Public Use
  Company Number: US-GLAXOSMITHKLINE-US2019GSK021690

PATIENT
  Sex: Female

DRUGS (3)
  1. BENLYSTA [Suspect]
     Active Substance: BELIMUMAB
     Indication: SYSTEMIC LUPUS ERYTHEMATOSUS
     Dosage: UNK
     Route: 042
  2. FLAGYL [Concomitant]
     Active Substance: METRONIDAZOLE\METRONIDAZOLE HYDROCHLORIDE
     Indication: PRODUCT USED FOR UNKNOWN INDICATION
  3. BENLYSTA [Suspect]
     Active Substance: BELIMUMAB
     Indication: SYSTEMIC LUPUS ERYTHEMATOSUS
     Dosage: 200 MG/KG
     Route: 058

REACTIONS (15)
  - Pain [Not Recovered/Not Resolved]
  - Seizure [Recovering/Resolving]
  - Drug ineffective [Unknown]
  - Tooth abscess [Recovered/Resolved]
  - Vomiting [Not Recovered/Not Resolved]
  - Illness [Unknown]
  - Infection [Recovered/Resolved]
  - Faeces discoloured [Recovered/Resolved]
  - Illness [Recovered/Resolved]
  - Tuberculosis [Unknown]
  - Spinal cord neoplasm [Not Recovered/Not Resolved]
  - Abdominal pain [Not Recovered/Not Resolved]
  - Pyrexia [Recovered/Resolved]
  - Coagulopathy [Unknown]
  - Rash [Recovering/Resolving]
